FAERS Safety Report 14216545 (Version 2)
Quarter: 2017Q4

REPORT INFORMATION
  Report Type: Spontaneous
  Country: GB (occurrence: GB)
  Receive Date: 20171122
  Receipt Date: 20171212
  Transmission Date: 20180321
  Serious: Yes (Death)
  Sender: FDA-Public Use
  Company Number: CA-PFIZER INC-2017501716

PATIENT
  Sex: Male

DRUGS (2)
  1. MORPHINE [Suspect]
     Active Substance: MORPHINE
     Dosage: UNK
     Dates: start: 1936
  2. COCAINE [Suspect]
     Active Substance: COCAINE
     Dosage: UNK
     Dates: start: 1936

REACTIONS (1)
  - Death [Fatal]

NARRATIVE: CASE EVENT DATE: 1936
